FAERS Safety Report 4803161-5 (Version None)
Quarter: 2005Q4

REPORT INFORMATION
  Report Type: 
  Country: None (occurrence: None)
  Receive Date: 20051013
  Receipt Date: 20050926
  Transmission Date: 20060501
  Serious: Yes (Other)
  Sender: FDA-Public Use
  Company Number: USA0509109049

PATIENT
  Age: 60 Year
  Sex: Female
  Weight: 38 kg

DRUGS (1)
  1. XIGRIS                 (DROTRECOGIN ALFA (ACTIVATED)) [Suspect]
     Indication: SEPSIS
     Dates: start: 20050924

REACTIONS (1)
  - PLATELET COUNT DECREASED [None]
